FAERS Safety Report 4699312-6 (Version None)
Quarter: 2005Q2

REPORT INFORMATION
  Report Type: 
  Country: None (occurrence: None)
  Receive Date: 20050624
  Receipt Date: 20050413
  Transmission Date: 20051028
  Serious: Yes (Hospitalization)
  Sender: FDA-Public Use
  Company Number: JP-GLAXOSMITHKLINE-B0378003A

PATIENT
  Age: 69 Year
  Sex: Female

DRUGS (5)
  1. MODACIN [Suspect]
     Indication: ABDOMINAL ABSCESS
     Dosage: 1G THREE TIMES PER DAY
     Route: 042
     Dates: start: 20050322, end: 20050327
  2. PENTCILLIN [Suspect]
     Indication: ABDOMINAL ABSCESS
     Dosage: 2G TWICE PER DAY
     Route: 042
     Dates: start: 20050327, end: 20050330
  3. MAGLAX [Concomitant]
     Indication: CONSTIPATION
     Route: 048
     Dates: start: 20050316
  4. DAI-KENCHU-TO [Concomitant]
     Indication: ABDOMINAL DISTENSION
     Dosage: 3U PER DAY
     Route: 048
     Dates: start: 20050322
  5. LAXOBERON [Concomitant]
     Indication: CONSTIPATION
     Route: 048
     Dates: start: 20050322

REACTIONS (4)
  - ANASTOMOTIC HAEMORRHAGE [None]
  - ENTEROCOLITIS HAEMORRHAGIC [None]
  - NEUTROPENIA [None]
  - POST PROCEDURAL HAEMORRHAGE [None]
